FAERS Safety Report 5917095-6 (Version None)
Quarter: 2008Q4

REPORT INFORMATION
  Report Type: 
  Country: None (occurrence: None)
  Receive Date: 20081009
  Receipt Date: 20080929
  Transmission Date: 20090506
  Serious: Yes (Other)
  Sender: FDA-Public Use
  Company Number: 100#08#2008-04685

PATIENT
  Age: 9 Year
  Sex: Male

DRUGS (2)
  1. METHOTREXATE [Suspect]
     Indication: T-CELL TYPE ACUTE LEUKAEMIA
     Dosage: INTRATHECAL, 5 G/M2 INTRAVENOUS
  2. PREDNISOLONE [Concomitant]

REACTIONS (1)
  - ANAPHYLACTIC REACTION [None]
